FAERS Safety Report 10064426 (Version 2)
Quarter: 2014Q2

REPORT INFORMATION
  Report Type: Spontaneous
  Country: US (occurrence: US)
  Receive Date: 20140408
  Receipt Date: 20140509
  Transmission Date: 20141212
  Serious: Yes (Hospitalization, Other)
  Sender: FDA-Public Use
  Company Number: US-AMGEN-USASP2014023592

PATIENT
  Age: 50 Year
  Sex: Male
  Weight: 77 kg

DRUGS (1)
  1. PROLIA [Suspect]
     Indication: OSTEOPOROSIS
     Dosage: 60 MG, Q6MO
     Route: 058
     Dates: start: 20130605

REACTIONS (14)
  - Oral pain [Not Recovered/Not Resolved]
  - Drug abuse [Unknown]
  - Colitis ulcerative [Unknown]
  - Exostosis [Unknown]
  - Toothache [Unknown]
  - Trismus [Unknown]
  - Gastrooesophageal reflux disease [Unknown]
  - Cellulitis [Unknown]
  - Oral infection [Unknown]
  - Pain [Unknown]
  - Blood potassium decreased [Unknown]
  - Hypertension [Unknown]
  - Wound [Unknown]
  - Tooth abscess [Unknown]
